FAERS Safety Report 14901545 (Version 1)
Quarter: 2018Q2

REPORT INFORMATION
  Report Type: Report from Study
  Country: None (occurrence: US)
  Receive Date: 20180516
  Receipt Date: 20180516
  Transmission Date: 20180711
  Serious: Yes (Other)
  Sender: FDA-Public Use
  Company Number: US-ABBVIE-18K-163-2340091-00

PATIENT
  Age: 53 Year
  Sex: Female
  Weight: 77.18 kg

DRUGS (2)
  1. HUMIRA [Suspect]
     Active Substance: ADALIMUMAB
     Route: 058
     Dates: start: 201403, end: 201803
  2. HUMIRA [Suspect]
     Active Substance: ADALIMUMAB
     Indication: CROHN^S DISEASE
     Route: 058
     Dates: start: 201003, end: 201403

REACTIONS (11)
  - Arthralgia [Recovered/Resolved]
  - Dyspnoea [Recovered/Resolved]
  - Pre-existing condition improved [Unknown]
  - Drug resistance [Not Recovered/Not Resolved]
  - Gastrointestinal obstruction [Unknown]
  - Inflammation [Recovering/Resolving]
  - Drug effect decreased [Not Recovered/Not Resolved]
  - Rosacea [Unknown]
  - Abdominal pain [Recovered/Resolved]
  - Therapeutic response unexpected [Unknown]
  - Drug ineffective [Unknown]

NARRATIVE: CASE EVENT DATE: 201711
